FAERS Safety Report 4318837-6 (Version None)
Quarter: 2004Q1

REPORT INFORMATION
  Report Type: 
  Country: None (occurrence: None)
  Receive Date: 20040315
  Receipt Date: 20040302
  Transmission Date: 20041129
  Serious: Yes (Death)
  Sender: FDA-Public Use
  Company Number: 04P-163-0252002-00

PATIENT
  Age: 55 Year
  Sex: Male

DRUGS (10)
  1. NORVIR [Suspect]
     Indication: HIV INFECTION
     Dosage: PER ORAL
     Route: 048
     Dates: start: 20030908, end: 20040114
  2. TIPRANAVIR [Concomitant]
  3. IPRATROPIUM BROMIDE [Concomitant]
  4. ATORVASTATIN [Concomitant]
  5. GEMFIBROZIL [Concomitant]
  6. LIQUID NUTRITIONAL SUPPLEMENT [Concomitant]
  7. DIPHENHYDRMINE [Concomitant]
  8. GATIFLOXACIN [Concomitant]
  9. FLUNISOLIDE [Concomitant]
  10. LORATADINE [Concomitant]

REACTIONS (2)
  - FEELING COLD [None]
  - RESPIRATORY ARREST [None]
